FAERS Safety Report 11869978 (Version 1)
Quarter: 2015Q4

REPORT INFORMATION
  Report Type: Spontaneous
  Country: US (occurrence: None)
  Receive Date: 20151224
  Receipt Date: 20151224
  Transmission Date: 20160305
  Serious: No
  Sender: FDA-Public Use
  Company Number: None

PATIENT
  Sex: Female

DRUGS (1)
  1. ENBREL [Suspect]
     Active Substance: ETANERCEPT
     Indication: RHEUMATOID ARTHRITIS
     Dosage: 50 MG  WEEKLY  SC
     Route: 058

REACTIONS (5)
  - Cyst [None]
  - Arthralgia [None]
  - Swelling [None]
  - Injection site reaction [None]
  - Diarrhoea [None]
